FAERS Safety Report 19873557 (Version 1)
Quarter: 2021Q3

REPORT INFORMATION
  Report Type: Spontaneous
  Country: US (occurrence: US)
  Receive Date: 20210923
  Receipt Date: 20210923
  Transmission Date: 20211014
  Serious: Yes (Hospitalization)
  Sender: FDA-Public Use
  Company Number: None

PATIENT
  Age: 50 Year
  Sex: Male
  Weight: 100.12 kg

DRUGS (1)
  1. REGEN?COV [Suspect]
     Active Substance: CASIRIVIMAB\IMDEVIMAB
     Indication: COVID-19
     Dosage: ?          OTHER FREQUENCY:ONCE;?
     Route: 042
     Dates: start: 20210921, end: 20210921

REACTIONS (7)
  - Dizziness [None]
  - Headache [None]
  - Hypotension [None]
  - Cough [None]
  - Nausea [None]
  - Oxygen saturation decreased [None]
  - Cold sweat [None]

NARRATIVE: CASE EVENT DATE: 20210921
